FAERS Safety Report 5530751-7 (Version None)
Quarter: 2007Q4

REPORT INFORMATION
  Report Type: 
  Country: None (occurrence: None)
  Receive Date: 20071130
  Receipt Date: 20071120
  Transmission Date: 20080405
  Serious: Yes (Other)
  Sender: FDA-Public Use
  Company Number: CA-ELI_LILLY_AND_COMPANY-CA200711005390

PATIENT
  Age: 64 Year
  Sex: Male

DRUGS (3)
  1. CIALIS [Suspect]
     Dates: start: 20061101
  2. AVALIDE [Concomitant]
     Indication: BLOOD PRESSURE
  3. MONOCARD [Concomitant]
     Indication: BLOOD PRESSURE

REACTIONS (2)
  - BLINDNESS [None]
  - BLOOD PRESSURE ABNORMAL [None]
